FAERS Safety Report 8336515-3 (Version None)
Quarter: 2012Q2

REPORT INFORMATION
  Report Type: 
  Country: None (occurrence: None)
  Receive Date: 20120504
  Receipt Date: 20120424
  Transmission Date: 20120825
  Serious: Yes (Hospitalization)
  Sender: FDA-Public Use
  Company Number: FR-BRISTOL-MYERS SQUIBB COMPANY-16550568

PATIENT
  Age: 65 Year
  Sex: Female

DRUGS (13)
  1. AMARYL [Suspect]
     Indication: DIABETES MELLITUS
     Dosage: TABS
     Route: 048
     Dates: end: 20120317
  2. LANTUS [Suspect]
     Indication: DIABETES MELLITUS
     Route: 058
  3. APIDRA [Suspect]
     Indication: DIABETES MELLITUS
     Dosage: 1DF= 6-10 IU/DAY
     Route: 058
  4. TOPIRAMATE [Concomitant]
  5. VITAMIN D [Concomitant]
  6. ONGLYZA [Suspect]
     Indication: DIABETES MELLITUS
     Route: 048
  7. DEBRIDAT [Concomitant]
  8. DOMPERIDONE [Concomitant]
  9. ASPIRIN [Concomitant]
     Dosage: POWDER
  10. FERROUS SULFATE TAB [Concomitant]
  11. PRAVASTATIN [Concomitant]
     Dosage: TABS
  12. CYMBALTA [Concomitant]
     Dosage: TABS
  13. NEXIUM [Concomitant]
     Dosage: TABS

REACTIONS (5)
  - HYPOGLYCAEMIA [None]
  - DIARRHOEA [None]
  - FEEDING DISORDER [None]
  - VOMITING [None]
  - ACIDOSIS HYPERCHLORAEMIC [None]
